FAERS Safety Report 8959396 (Version 2)
Quarter: 2012Q4

REPORT INFORMATION
  Report Type: 
  Country: US (occurrence: US)
  Receive Date: 20121212
  Receipt Date: 20121214
  Transmission Date: 20130627
  Serious: Yes (Hospitalization)
  Sender: FDA-Public Use
  Company Number: US-BAYER-2012-128819

PATIENT
  Age: 33 Year
  Sex: Female

DRUGS (4)
  1. YASMIN [Suspect]
     Indication: POLYCYSTIC OVARIAN SYNDROME
  2. ESTRADIOL [Concomitant]
     Dosage: 2 mg, UNK
  3. NIFEREX [Concomitant]
     Dosage: 150 mg, BID
  4. LEVAQUIN [Concomitant]

REACTIONS (2)
  - Deep vein thrombosis [None]
  - Off label use [None]
